FAERS Safety Report 8179839-5 (Version None)
Quarter: 2012Q1

REPORT INFORMATION
  Report Type: 
  Country: None (occurrence: None)
  Receive Date: 20120302
  Receipt Date: 20120228
  Transmission Date: 20120608
  Serious: Yes (Death)
  Sender: FDA-Public Use
  Company Number: US-CELGENEUS-163-21880-12023132

PATIENT
  Sex: Male

DRUGS (9)
  1. FLUNISOLIDE [Concomitant]
     Route: 065
  2. LORTAB [Concomitant]
     Route: 065
  3. DIPHENHYDRAMINE HCL [Concomitant]
     Route: 065
  4. REVLIMID [Suspect]
     Indication: MULTIPLE MYELOMA
     Dosage: 25 MILLIGRAM
     Route: 048
     Dates: start: 20120201
  5. DOXAZOSIN MESYLATE [Concomitant]
     Route: 065
  6. DEXAMETHASONE [Concomitant]
     Route: 065
  7. ASPIRIN [Concomitant]
     Dosage: 81 MILLIGRAM
     Route: 065
  8. DILTIAZEM HCL [Concomitant]
     Route: 065
  9. LEVOFLOXACIN [Concomitant]
     Route: 065

REACTIONS (1)
  - DEATH [None]
